FAERS Safety Report 19641954 (Version 3)
Quarter: 2021Q3

REPORT INFORMATION
  Report Type: Spontaneous
  Country: GB (occurrence: GB)
  Receive Date: 20210730
  Receipt Date: 20210810
  Transmission Date: 20211014
  Serious: Yes (Hospitalization, Other)
  Sender: FDA-Public Use
  Company Number: GB-PFIZER INC-2021776176

PATIENT

DRUGS (1)
  1. TOZINAMERAN. [Suspect]
     Active Substance: TOZINAMERAN
     Indication: COVID-19 IMMUNISATION
     Dosage: DOSE 1, SINGLE
     Dates: start: 20210623, end: 20210623

REACTIONS (5)
  - Heart rate increased [Not Recovered/Not Resolved]
  - Syncope [Recovered/Resolved]
  - Nasal injury [Unknown]
  - Skin laceration [Unknown]
  - Fall [Unknown]

NARRATIVE: CASE EVENT DATE: 20210623
